FAERS Safety Report 5776954-8 (Version None)
Quarter: 2008Q2

REPORT INFORMATION
  Report Type: 
  Country: None (occurrence: None)
  Receive Date: 20080618
  Receipt Date: 20080606
  Transmission Date: 20081010
  Serious: Yes (Hospitalization)
  Sender: FDA-Public Use
  Company Number: US-JNJFOC-20080602393

PATIENT
  Age: 43 Year
  Sex: Male
  Weight: 79.38 kg

DRUGS (1)
  1. NEUTROGENA T/GEL THERAPEUTIC SHAMPOO EXTRA STRENGTH FORMULA [Suspect]
     Indication: DRUG USE FOR UNKNOWN INDICATION
     Dosage: USED FOR 2 DAYS

REACTIONS (2)
  - APPLICATION SITE IRRITATION [None]
  - BULLOUS IMPETIGO [None]
